FAERS Safety Report 9968321 (Version 1)
Quarter: 2014Q1

REPORT INFORMATION
  Report Type: Report from Study
  Country: US (occurrence: US)
  Receive Date: 20140306
  Receipt Date: 20140306
  Transmission Date: 20141002
  Serious: No
  Sender: FDA-Public Use
  Company Number: US-ABBVIE-13P-163-1142999-00

PATIENT
  Age: 42 Year
  Sex: Female

DRUGS (5)
  1. HUMIRA [Suspect]
     Indication: RHEUMATOID ARTHRITIS
     Dates: start: 20130717
  2. SYNTHROID [Concomitant]
     Indication: HYPOTHYROIDISM
     Dosage: .175MG DAILY
     Route: 048
  3. ALBUTEROL HFA [Concomitant]
     Indication: ASTHMA
  4. MESALAMINE [Concomitant]
     Indication: RECTAL HAEMORRHAGE
  5. OMEPRAZOLE [Concomitant]
     Indication: DYSPEPSIA
     Dosage: 30MG DAILY
     Route: 048

REACTIONS (2)
  - Toothache [Not Recovered/Not Resolved]
  - Endodontic procedure [Not Recovered/Not Resolved]
